FAERS Safety Report 23917706 (Version 2)
Quarter: 2024Q4

REPORT INFORMATION
  Report Type: Spontaneous
  Country: FR (occurrence: FR)
  Receive Date: 20240530
  Receipt Date: 20241029
  Transmission Date: 20250115
  Serious: Yes (Hospitalization, Other)
  Sender: CHEPLAPHARM
  Company Number: None

PATIENT
  Age: 37 Year
  Sex: Male

DRUGS (7)
  1. OLANZAPINE [Suspect]
     Active Substance: OLANZAPINE
     Indication: Schizophrenia
     Dosage: DAILY DOSE: 10 MILLIGRAM
     Route: 048
     Dates: start: 201210
  2. OLANZAPINE [Suspect]
     Active Substance: OLANZAPINE
     Indication: Schizophrenia
     Route: 048
     Dates: start: 2018, end: 201905
  3. OLANZAPINE [Suspect]
     Active Substance: OLANZAPINE
     Indication: Schizophrenia
     Dosage: DAILY DOSE: 10 MILLIGRAM
     Route: 048
     Dates: start: 201907, end: 201907
  4. OLANZAPINE [Suspect]
     Active Substance: OLANZAPINE
     Indication: Schizophrenia
     Dosage: DAILY DOSE: 10 MILLIGRAM
     Route: 048
     Dates: start: 20190906
  5. SERTRALINE [Suspect]
     Active Substance: SERTRALINE HYDROCHLORIDE
     Indication: Depression
     Dosage: DAILY DOSE: 150 MILLIGRAM
     Route: 048
     Dates: start: 201910
  6. ARIPIPRAZOLE [Suspect]
     Active Substance: ARIPIPRAZOLE
  7. VALPROATE SODIUM [Concomitant]
     Active Substance: VALPROATE SODIUM
     Indication: Photosensitive seizure
     Dosage: SUSTAINED RELEASE GRANULES? SACHET-DOSE?DAILY DOSE: 1000 MILLIGRAM
     Route: 048
     Dates: start: 202212

REACTIONS (2)
  - Compulsive shopping [Recovered/Resolved with Sequelae]
  - Rebound psychosis [Unknown]

NARRATIVE: CASE EVENT DATE: 20190101
